FAERS Safety Report 20193239 (Version 11)
Quarter: 2025Q3

REPORT INFORMATION
  Report Type: Report from Study
  Country: US (occurrence: US)
  Receive Date: 20211216
  Receipt Date: 20250710
  Transmission Date: 20251020
  Serious: Yes (Hospitalization, Other)
  Sender: NOVARTIS
  Company Number: US-NOVARTISTESTPH-NVSC2021US288485

PATIENT
  Age: 75 Year
  Sex: Female

DRUGS (3)
  1. ENTRESTO [Suspect]
     Active Substance: SACUBITRIL\VALSARTAN
     Indication: Cardiac failure
     Dosage: 50 MG, BID, (24/26 MG: SACUBITRIL 24.3 MG, VALSARTAN 25.7 MG)
     Route: 048
     Dates: start: 20211203
  2. METOPROLOL [Concomitant]
     Active Substance: METOPROLOL
     Indication: Product used for unknown indication
     Route: 065
  3. ACETAMINOPHEN [Concomitant]
     Active Substance: ACETAMINOPHEN
     Indication: Product used for unknown indication
     Route: 048
     Dates: start: 20220415

REACTIONS (18)
  - Atypical pneumonia [Recovered/Resolved]
  - Chest pain [Unknown]
  - Renal impairment [Unknown]
  - Deafness [Unknown]
  - Dyspnoea [Not Recovered/Not Resolved]
  - Phobia of driving [Unknown]
  - Somnolence [Not Recovered/Not Resolved]
  - Humerus fracture [Recovering/Resolving]
  - Depressed mood [Recovering/Resolving]
  - Arthralgia [Unknown]
  - Exostosis [Unknown]
  - Osteopenia [Unknown]
  - Joint space narrowing [Unknown]
  - Fall [Recovering/Resolving]
  - Fatigue [Not Recovered/Not Resolved]
  - Blood pressure systolic decreased [Not Recovered/Not Resolved]
  - Dizziness [Recovering/Resolving]
  - Drug ineffective [Recovered/Resolved]

NARRATIVE: CASE EVENT DATE: 20211203
